FAERS Safety Report 16906439 (Version 1)
Quarter: 2019Q4

REPORT INFORMATION
  Report Type: Spontaneous
  Country: FR (occurrence: FR)
  Receive Date: 20191011
  Receipt Date: 20191011
  Transmission Date: 20200122
  Serious: Yes (Other)
  Sender: FDA-Public Use
  Company Number: FR-ROCHE-2434827

PATIENT
  Age: 12 Year
  Sex: Female
  Weight: 76 kg

DRUGS (1)
  1. ROACTEMRA [Suspect]
     Active Substance: TOCILIZUMAB
     Indication: JUVENILE IDIOPATHIC ARTHRITIS
     Route: 058
     Dates: start: 201802, end: 20190715

REACTIONS (1)
  - Seborrhoeic dermatitis [Recovering/Resolving]

NARRATIVE: CASE EVENT DATE: 201903
